FAERS Safety Report 4854407-9 (Version None)
Quarter: 2005Q4

REPORT INFORMATION
  Report Type: 
  Country: None (occurrence: None)
  Receive Date: 20051215
  Receipt Date: 20051206
  Transmission Date: 20060501
  Serious: Yes (Hospitalization)
  Sender: FDA-Public Use
  Company Number: PHRM2005FR03204

PATIENT
  Age: 72 Year
  Sex: Female
  Weight: 58 kg

DRUGS (6)
  1. DI-ANTALVIC [Concomitant]
     Indication: SHOULDER PAIN
     Dosage: UNK, UNK
     Route: 048
  2. KETOPROFEN [Concomitant]
     Indication: SHOULDER PAIN
     Route: 061
     Dates: start: 20050718
  3. LAMISIL [Suspect]
     Indication: NAIL TINEA
     Dosage: 250 MG, QD
     Route: 048
     Dates: start: 20050718, end: 20050819
  4. NAPROXEN [Concomitant]
     Indication: SHOULDER PAIN
     Dosage: 1 DF, BID
     Route: 048
     Dates: start: 20050718
  5. LOCERYL [Concomitant]
     Indication: NAIL TINEA
     Route: 061
     Dates: start: 20050718
  6. ELISOR [Concomitant]
     Dosage: 1 DF, QD
     Route: 048
     Dates: start: 20030101

REACTIONS (8)
  - BIOPSY SKIN ABNORMAL [None]
  - BURNING SENSATION [None]
  - C-REACTIVE PROTEIN INCREASED [None]
  - ERYTHEMA [None]
  - LYMPHADENOPATHY [None]
  - PUSTULAR PSORIASIS [None]
  - RASH PAPULAR [None]
  - SKIN EXFOLIATION [None]
